FAERS Safety Report 14571610 (Version 1)
Quarter: 2018Q1

REPORT INFORMATION
  Report Type: Spontaneous
  Country: US (occurrence: US)
  Receive Date: 20180226
  Receipt Date: 20180226
  Transmission Date: 20180509
  Serious: Yes (Other)
  Sender: FDA-Public Use
  Company Number: US-PFIZER INC-2018075997

PATIENT
  Age: 55 Year
  Sex: Female
  Weight: 73 kg

DRUGS (3)
  1. PREMPRO [Concomitant]
     Active Substance: ESTROGENS, CONJUGATED\MEDROXYPROGESTERONE ACETATE
     Indication: DYSPAREUNIA
     Dosage: 1 DF, 1X/DAY
     Route: 048
  2. PREMARIN [Suspect]
     Active Substance: ESTROGENS, CONJUGATED
     Indication: DYSPAREUNIA
     Dosage: 1 G, (ONE TO TWO TIMES A WEEK)
     Route: 067
     Dates: start: 201706
  3. PREMARIN [Suspect]
     Active Substance: ESTROGENS, CONJUGATED
     Dosage: 1 G, (TWO TO THREE TIMES A WEEK)
     Route: 067
     Dates: start: 2017, end: 201802

REACTIONS (2)
  - Product use issue [Unknown]
  - Bacterial vulvovaginitis [Recovered/Resolved with Sequelae]

NARRATIVE: CASE EVENT DATE: 2017
